FAERS Safety Report 18007214 (Version 1)
Quarter: 2020Q3

REPORT INFORMATION
  Report Type: Spontaneous
  Country: BG (occurrence: BG)
  Receive Date: 20200710
  Receipt Date: 20200710
  Transmission Date: 20201103
  Serious: Yes (Other)
  Sender: FDA-Public Use
  Company Number: BG-ASTRAZENECA-2020SE85915

PATIENT
  Age: 73 Year
  Sex: Female

DRUGS (11)
  1. FUROSEMIDE. [Concomitant]
     Active Substance: FUROSEMIDE
     Dosage: 6 VIALS
  2. PERINDOPRIL [Concomitant]
     Active Substance: PERINDOPRIL
  3. ASPIRIN. [Concomitant]
     Active Substance: ASPIRIN
     Route: 048
  4. BRILIQUE [Suspect]
     Active Substance: TICAGRELOR
     Dosage: 2 TABLETS (180MG)
     Route: 048
  5. HEPARIN [Concomitant]
     Active Substance: HEPARIN SODIUM
     Dosage: 5000IU BEFORE PCI
  6. OXYGEN. [Concomitant]
     Active Substance: OXYGEN
  7. ROSUVASTATIN. [Concomitant]
     Active Substance: ROSUVASTATIN
  8. LOSARTAN. [Concomitant]
     Active Substance: LOSARTAN
     Indication: HYPERTENSION
  9. FUROSEMIDE. [Concomitant]
     Active Substance: FUROSEMIDE
     Dosage: 40.0MG UNKNOWN
  10. DOPAMINE PERFUSION [Concomitant]
  11. TRIFAS [Concomitant]

REACTIONS (2)
  - Blood pressure systolic decreased [Recovered/Resolved]
  - Mitral valve incompetence [Recovered/Resolved]
